FAERS Safety Report 17158830 (Version 4)
Quarter: 2020Q1

REPORT INFORMATION
  Report Type: Report from Study
  Country: US (occurrence: US)
  Receive Date: 20191216
  Receipt Date: 20200320
  Transmission Date: 20200409
  Serious: Yes (Life-Threatening, Hospitalization, Disabling, Other)
  Sender: FDA-Public Use
  Company Number: NVSC2019US064652

PATIENT
  Age: 69 Year
  Sex: Male
  Weight: 65.95 kg

DRUGS (3)
  1. FLUDARABINE [Concomitant]
     Active Substance: FLUDARABINE PHOSPHATE
     Indication: CHEMOTHERAPY
     Dosage: UNK
     Route: 065
  2. KYMRIAH [Suspect]
     Active Substance: TISAGENLECLEUCEL
     Indication: DIFFUSE LARGE B-CELL LYMPHOMA
     Dosage: UNK, ONCE/SINGLE
     Route: 041
     Dates: start: 20190422
  3. CYCLOPHOSPHAMIDE. [Concomitant]
     Active Substance: CYCLOPHOSPHAMIDE
     Indication: CHEMOTHERAPY
     Dosage: UNK
     Route: 065

REACTIONS (16)
  - Hydronephrosis [Unknown]
  - Sepsis [Unknown]
  - Abdominal discomfort [Unknown]
  - Infection [Unknown]
  - Acute kidney injury [Unknown]
  - Second primary malignancy [Not Recovered/Not Resolved]
  - Urinary tract infection [Unknown]
  - Cytokine release syndrome [Recovered/Resolved]
  - Pyrexia [Unknown]
  - Malignant genitourinary tract neoplasm [Unknown]
  - Retroperitoneal fibrosis [Unknown]
  - Flatulence [Unknown]
  - Bladder mass [Unknown]
  - Necrosis [Unknown]
  - Genital disorder [Unknown]
  - Bladder squamous cell carcinoma stage unspecified [Not Recovered/Not Resolved]

NARRATIVE: CASE EVENT DATE: 20191014
